FAERS Safety Report 7725607-5 (Version None)
Quarter: 2011Q3

REPORT INFORMATION
  Report Type: 
  Country: None (occurrence: None)
  Receive Date: 20110831
  Receipt Date: 20110816
  Transmission Date: 20111222
  Serious: Yes (Other)
  Sender: FDA-Public Use
  Company Number: MC201100407

PATIENT
  Age: 42 Year
  Sex: Female

DRUGS (9)
  1. MULTIVITAMINS (VITAMINS NOS) [Concomitant]
  2. VERAPAMIL [Concomitant]
  3. VITAMIN D [Concomitant]
  4. COREG [Concomitant]
  5. CLEVIPREX [Suspect]
     Indication: HYPERTENSION
  6. PLAVIX [Concomitant]
  7. LISINOPRIL [Concomitant]
  8. LIPITOR [Concomitant]
  9. ASPIRIN [Concomitant]

REACTIONS (2)
  - POST PROCEDURAL COMPLICATION [None]
  - THROMBOSIS [None]
